FAERS Safety Report 24378387 (Version 1)
Quarter: 2024Q3

REPORT INFORMATION
  Report Type: Spontaneous
  Country: US (occurrence: US)
  Receive Date: 20240930
  Receipt Date: 20240930
  Transmission Date: 20241016
  Serious: Yes (Hospitalization, Other)
  Sender: SANOFI AVENTIS
  Company Number: US-SA-2024SA280384

PATIENT
  Age: 72 Year
  Sex: Female
  Weight: 56.82 kg

DRUGS (1)
  1. DUPIXENT [Suspect]
     Active Substance: DUPILUMAB
     Indication: Dermatitis atopic
     Dosage: 300 MG, QOW
     Route: 058

REACTIONS (2)
  - Sepsis [Recovering/Resolving]
  - Pruritus [Recovering/Resolving]

NARRATIVE: CASE EVENT DATE: 20240901
